FAERS Safety Report 18560219 (Version 1)
Quarter: 2020Q4

REPORT INFORMATION
  Report Type: Spontaneous
  Country: US (occurrence: US)
  Receive Date: 20201130
  Receipt Date: 20201130
  Transmission Date: 20210114
  Serious: No
  Sender: FDA-Public Use
  Company Number: US-MATRIXX INITIATIVES, INC.-2096444

PATIENT
  Age: 39 Year
  Sex: Male
  Weight: 113.64 kg

DRUGS (2)
  1. UNSPECIFIED VITAMINS [Concomitant]
     Active Substance: VITAMINS
  2. ZICAM INTENSE SINUS RELIEF [Suspect]
     Active Substance: OXYMETAZOLINE HYDROCHLORIDE
     Route: 045
     Dates: start: 20201127, end: 20201127

REACTIONS (2)
  - Ageusia [None]
  - Anosmia [None]
